FAERS Safety Report 24377851 (Version 2)
Quarter: 2024Q4

REPORT INFORMATION
  Report Type: Spontaneous
  Country: US (occurrence: US)
  Receive Date: 20240930
  Receipt Date: 20241125
  Transmission Date: 20250114
  Serious: No
  Sender: Kenvue
  Company Number: US-JNJFOC-20240934968

PATIENT
  Sex: Male

DRUGS (2)
  1. MENS ROGAINE EXTRA STRENGTH [Suspect]
     Active Substance: MINOXIDIL
     Indication: Alopecia
     Dosage: 1 MILLILITER, TWICE A DAY
     Route: 061
     Dates: start: 202407
  2. MENS ROGAINE EXTRA STRENGTH [Suspect]
     Active Substance: MINOXIDIL
     Dosage: 1 MILLILITER, TWICE A DAY
     Route: 061
     Dates: start: 2023

REACTIONS (5)
  - Alopecia [Recovered/Resolved]
  - Application site pruritus [Not Recovered/Not Resolved]
  - Application site irritation [Recovered/Resolved]
  - Suspected counterfeit product [Unknown]
  - Poor quality product administered [Unknown]
